FAERS Safety Report 5430393-8 (Version None)
Quarter: 2007Q3

REPORT INFORMATION
  Report Type: 
  Country: None (occurrence: None)
  Receive Date: 20070828
  Receipt Date: 20070814
  Transmission Date: 20080115
  Serious: Yes (Death)
  Sender: FDA-Public Use
  Company Number: 100#08#2007-02835

PATIENT

DRUGS (2)
  1. CITALOPRAM HYDROBROMIDE [Suspect]
     Indication: SUICIDE ATTEMPT
     Dosage: 1.2 G (60MG TABLETS X 20), ORAL; ONCE
     Route: 048
  2. MOCLOBEMIDE(MOCLOBEMIDE)(TABLETS) (MOCLOBEMIDE) 1 [Suspect]
     Indication: SUICIDE ATTEMPT
     Dosage: 6G (300MG TABLETS X 20), ORAL;  ONCE
     Route: 048

REACTIONS (27)
  - BRADYCARDIA [None]
  - CARDIAC ARREST [None]
  - CARDIOVASCULAR DISORDER [None]
  - CATHETER SITE HAEMATOMA [None]
  - COMPLETED SUICIDE [None]
  - CONVULSION [None]
  - DISORIENTATION [None]
  - DISSEMINATED INTRAVASCULAR COAGULATION [None]
  - ELECTROCARDIOGRAM QT PROLONGED [None]
  - ELECTROMECHANICAL DISSOCIATION [None]
  - EPISTAXIS [None]
  - HYPERTHERMIA [None]
  - HYPERTONIA [None]
  - MOUTH HAEMORRHAGE [None]
  - MULTI-ORGAN FAILURE [None]
  - MULTIPLE DRUG OVERDOSE INTENTIONAL [None]
  - MYDRIASIS [None]
  - NAUSEA [None]
  - NO THERAPEUTIC RESPONSE [None]
  - PALLOR [None]
  - SEROTONIN SYNDROME [None]
  - SHOCK [None]
  - SINUS TACHYCARDIA [None]
  - SOMNOLENCE [None]
  - TRISMUS [None]
  - VENTRICULAR TACHYCARDIA [None]
  - VESSEL PUNCTURE SITE HAEMATOMA [None]
